FAERS Safety Report 4512326-1 (Version None)
Quarter: 2004Q4

REPORT INFORMATION
  Report Type: 
  Country: None (occurrence: None)
  Receive Date: 20041129
  Receipt Date: 20041116
  Transmission Date: 20050328
  Serious: Yes (Death)
  Sender: FDA-Public Use
  Company Number: FR-GLAXOSMITHKLINE-B0357567A

PATIENT
  Age: 58 Year
  Sex: Male

DRUGS (5)
  1. LAMIVUDINE [Suspect]
     Dates: start: 19961201
  2. STAVUDINE [Concomitant]
     Route: 065
     Dates: start: 19961201
  3. NEVIRAPINE [Concomitant]
     Route: 065
     Dates: start: 19990301
  4. DIDANOSINE [Concomitant]
     Route: 065
  5. INDINAVIR [Concomitant]
     Route: 065

REACTIONS (3)
  - DEATH [None]
  - HEPATIC FAILURE [None]
  - PATHOGEN RESISTANCE [None]
